FAERS Safety Report 15074977 (Version 2)
Quarter: 2023Q4

REPORT INFORMATION
  Report Type: Spontaneous
  Country: US (occurrence: US)
  Receive Date: 20180627
  Receipt Date: 20231128
  Transmission Date: 20240109
  Serious: Yes (Other)
  Sender: FDA-Public Use
  Company Number: US-SAOL THERAPEUTICS-2017SAO01643

PATIENT
  Sex: Female
  Weight: 77 kg

DRUGS (2)
  1. BACLOFEN [Suspect]
     Active Substance: BACLOFEN
     Indication: Muscle spasticity
     Dosage: 453.4 ?G, \DAY
     Route: 037
  2. BACLOFEN [Suspect]
     Active Substance: BACLOFEN
     Dosage: 919.6 ?G, \DAY
     Route: 037
     Dates: start: 20171116

REACTIONS (5)
  - Hypotonia [Recovered/Resolved]
  - Therapy non-responder [Recovered/Resolved]
  - Medical device discomfort [Recovered/Resolved]
  - Complication associated with device [Recovered/Resolved]
  - Muscle tightness [Recovered/Resolved]

NARRATIVE: CASE EVENT DATE: 20170101
